FAERS Safety Report 21416432 (Version 1)
Quarter: 2022Q4

REPORT INFORMATION
  Report Type: Spontaneous
  Country: US (occurrence: US)
  Receive Date: 20221006
  Receipt Date: 20221006
  Transmission Date: 20230113
  Serious: No
  Sender: FDA-Public Use
  Company Number: US-ALLERGAN-2215890US

PATIENT
  Sex: Male

DRUGS (1)
  1. VRAYLAR [Suspect]
     Active Substance: CARIPRAZINE
     Indication: Bipolar disorder
     Dosage: UNK

REACTIONS (9)
  - Muscle twitching [Unknown]
  - Tinnitus [Unknown]
  - Sexual dysfunction [Unknown]
  - Bruxism [Unknown]
  - Facial paralysis [Recovered/Resolved]
  - Restless legs syndrome [Unknown]
  - Extrapyramidal disorder [Unknown]
  - Drooling [Recovered/Resolved]
  - Dyskinesia [Recovered/Resolved]
